FAERS Safety Report 10567265 (Version 7)
Quarter: 2015Q2

REPORT INFORMATION
  Report Type: Report from Study
  Country: CH (occurrence: CH)
  Receive Date: 20141106
  Receipt Date: 20150409
  Transmission Date: 20150821
  Serious: Yes (Hospitalization)
  Sender: FDA-Public Use
  Company Number: CH-ROCHE-1486188

PATIENT
  Age: 56 Year

DRUGS (13)
  1. DESLORATADIN [Concomitant]
     Route: 048
     Dates: start: 20150108, end: 20150213
  2. VINORELBINE [Suspect]
     Active Substance: VINORELBINE\VINORELBINE TARTRATE
     Indication: HER-2 POSITIVE BREAST CANCER
     Dosage: DATE OF LAST VINORELBINE ADMINISTRATION PRIOR TO THE SAE: 14/MAY/2014
     Route: 042
     Dates: start: 20140113
  3. PERTUZUMAB [Suspect]
     Active Substance: PERTUZUMAB
     Dosage: DATE OF LAST PERTUZUMAB ADMINISTRATION PRIOR TO THE SAE: 01/OCT/2014, MAINTENANCE DOSE
     Route: 042
  4. AMITRIPTYLINE [Concomitant]
     Active Substance: AMITRIPTYLINE
     Route: 048
     Dates: start: 20141015
  5. ESCITALOPRAM [Concomitant]
     Active Substance: ESCITALOPRAM OXALATE
     Route: 065
     Dates: start: 20140530
  6. FLUPENTIXOL + MELITRACEN [Concomitant]
     Route: 048
     Dates: start: 20140819, end: 20141115
  7. ESCITALOPRAM [Concomitant]
     Active Substance: ESCITALOPRAM OXALATE
     Route: 065
     Dates: start: 20141109
  8. DESLORATADIN [Concomitant]
     Route: 048
     Dates: start: 20141016, end: 20150101
  9. TRASTUZUMAB [Suspect]
     Active Substance: TRASTUZUMAB
     Indication: HER-2 POSITIVE BREAST CANCER
     Dosage: LOADING DOSE
     Route: 042
     Dates: start: 20140113
  10. TRASTUZUMAB [Suspect]
     Active Substance: TRASTUZUMAB
     Dosage: DATE OF LAST TRASTUZUMAB ADMINISTRATION PRIOR TO THE SAE: 22/OCT/2014, MAINTENANCE DOSE
     Route: 042
  11. HYDROXIZINE CHLORIDE [Concomitant]
     Route: 048
     Dates: start: 20140819, end: 20141022
  12. PERTUZUMAB [Suspect]
     Active Substance: PERTUZUMAB
     Indication: HER-2 POSITIVE BREAST CANCER
     Dosage: LOADING DOSE
     Route: 042
     Dates: start: 20140113
  13. ZOLPIDEM TARTRATE SR [Concomitant]
     Route: 065
     Dates: start: 20150319

REACTIONS (2)
  - Pruritus [Recovered/Resolved with Sequelae]
  - Depression [Recovered/Resolved with Sequelae]

NARRATIVE: CASE EVENT DATE: 20141104
